FAERS Safety Report 9240387 (Version 3)
Quarter: 2013Q3

REPORT INFORMATION
  Report Type: Spontaneous
  Country: CA (occurrence: None)
  Receive Date: 20130417
  Receipt Date: 20130812
  Transmission Date: 20140515
  Serious: Yes (Other)
  Sender: FDA-Public Use
  Company Number: JPI-P-031074

PATIENT
  Age: 31 Year
  Sex: Female

DRUGS (4)
  1. XYREM [Suspect]
     Indication: NARCOLEPSY
     Dosage: 4.5 GM (2.25 GM,2 IN 1 D),ORAL
     Route: 048
     Dates: start: 20120619, end: 201302
  2. AMPHETAMINE, DEXTROAMPHETAMINE, MIXED SALTS [Concomitant]
  3. ANTIDEPRESSANT [Concomitant]
  4. METHYLPHENIDATE HYDROCHLORIDE [Concomitant]

REACTIONS (5)
  - Initial insomnia [None]
  - Abortion spontaneous [None]
  - Exposure during pregnancy [None]
  - Pregnancy [None]
  - Drug ineffective [None]
